FAERS Safety Report 4312581-7 (Version None)
Quarter: 2004Q1

REPORT INFORMATION
  Report Type: 
  Country: None (occurrence: None)
  Receive Date: 20040303
  Receipt Date: 20040220
  Transmission Date: 20041129
  Serious: Yes (Hospitalization)
  Sender: FDA-Public Use
  Company Number: RB-532-2004

PATIENT
  Age: 42 Year
  Sex: Female

DRUGS (1)
  1. SUBOXONE [Suspect]
     Indication: DRUG DEPENDENCE

REACTIONS (8)
  - ABORTION SPONTANEOUS [None]
  - ARTHRITIS VIRAL [None]
  - AUTOIMMUNE DISORDER [None]
  - COMPLICATIONS OF MATERNAL EXPOSURE TO THERAPEUTIC DRUGS [None]
  - DEPRESSION [None]
  - MATERNAL DRUGS AFFECTING FOETUS [None]
  - POST PROCEDURAL COMPLICATION [None]
  - RETAINED PLACENTA OR MEMBRANES [None]
